FAERS Safety Report 9665732 (Version 7)
Quarter: 2013Q4

REPORT INFORMATION
  Report Type: Report from Study
  Country: CA (occurrence: CA)
  Receive Date: 20131104
  Receipt Date: 20131224
  Transmission Date: 20140711
  Serious: Yes (Hospitalization)
  Sender: FDA-Public Use
  Company Number: PHHY2013CA117564

PATIENT
  Sex: Female

DRUGS (1)
  1. SANDOSTATIN LAR [Suspect]
     Indication: MUCINOUS CYSTADENOCARCINOMA OF PANCREAS
     Dosage: 20 MG, EVERY 4 WEEKS
     Route: 030
     Dates: start: 20131010

REACTIONS (2)
  - Infection [Unknown]
  - Malaise [Unknown]
